FAERS Safety Report 9291513 (Version 1)
Quarter: 2013Q2

REPORT INFORMATION
  Report Type: Spontaneous
  Country: BR (occurrence: BR)
  Receive Date: 20130515
  Receipt Date: 20130515
  Transmission Date: 20140414
  Serious: Yes (Hospitalization, Other)
  Sender: FDA-Public Use
  Company Number: BR-ELI_LILLY_AND_COMPANY-BR201305001424

PATIENT
  Age: 72 Year
  Sex: Female
  Weight: 58 kg

DRUGS (9)
  1. HUMULIN NPH [Suspect]
     Indication: TYPE 2 DIABETES MELLITUS
     Dosage: 20 IU, EACH MORNING
     Route: 058
     Dates: start: 2008
  2. HUMULIN NPH [Suspect]
     Dosage: 30 IU, EACH EVENING
     Route: 058
     Dates: start: 2008
  3. HUMULIN NPH [Suspect]
     Dosage: 10 IU, EACH MORNING
     Route: 058
  4. HUMULIN NPH [Suspect]
     Dosage: 20 IU, EACH EVENING
     Route: 058
  5. SERTRALINA [Concomitant]
     Indication: ANXIETY
     Dosage: 1 DF, QD
     Route: 065
     Dates: start: 2012
  6. SERTRALINA [Concomitant]
     Dosage: 2 DF, QD
     Route: 065
     Dates: start: 20130328
  7. APRESOLIN [Concomitant]
     Indication: HYPERTENSION
     Dosage: UNK
     Route: 065
     Dates: start: 2012
  8. ALPRAZOLAN [Concomitant]
     Indication: ANXIETY
     Dosage: 1 MG, EACH MORNING
     Route: 065
     Dates: start: 2012
  9. ALPRAZOLAN [Concomitant]
     Dosage: 2 DF, EACH EVENING
     Route: 065
     Dates: start: 2012

REACTIONS (8)
  - Blood pressure fluctuation [Recovered/Resolved]
  - Cardiac disorder [Recovered/Resolved]
  - Cataract [Unknown]
  - Generalised oedema [Recovered/Resolved]
  - Skin discolouration [Recovered/Resolved]
  - Visual acuity reduced [Not Recovered/Not Resolved]
  - Eye disorder [Unknown]
  - Anxiety [Unknown]
